FAERS Safety Report 7544439-4 (Version None)
Quarter: 2011Q2

REPORT INFORMATION
  Report Type: 
  Country: None (occurrence: None)
  Receive Date: 20110613
  Receipt Date: 20090521
  Transmission Date: 20111010
  Serious: Yes (Hospitalization, Other)
  Sender: FDA-Public Use
  Company Number: PHHY2008US09027

PATIENT
  Sex: Male
  Weight: 76.4 kg

DRUGS (5)
  1. MYFORTIC [Suspect]
     Indication: RENAL TRANSPLANT
  2. ANTIBIOTICS [Concomitant]
     Route: 042
  3. PREDNISONE [Concomitant]
  4. MYCOPHENOLATE MEFETIL [Suspect]
     Indication: IMMUNOSUPPRESSION
     Dosage: 2000 MG, QD
     Route: 048
     Dates: start: 20080228, end: 20080619
  5. MYFORTIC [Suspect]
     Indication: IMMUNOSUPPRESSION
     Dosage: 1440 MG, QD
     Route: 048
     Dates: start: 20080619

REACTIONS (8)
  - PYREXIA [None]
  - CHILLS [None]
  - PAIN IN EXTREMITY [None]
  - HAEMATOCRIT DECREASED [None]
  - SICKLE CELL ANAEMIA WITH CRISIS [None]
  - PULMONARY EMBOLISM [None]
  - HYPERGLYCAEMIA [None]
  - HYPOXIA [None]
